FAERS Safety Report 7715919-3 (Version None)
Quarter: 2011Q3

REPORT INFORMATION
  Report Type: 
  Country: None (occurrence: None)
  Receive Date: 20110829
  Receipt Date: 20110816
  Transmission Date: 20111222
  Serious: Yes (Other)
  Sender: FDA-Public Use
  Company Number: FR-JNJFOC-20110309249

PATIENT
  Sex: Female

DRUGS (1)
  1. ACETAMINOPHEN AND TRAMADOL HCL [Suspect]
     Indication: PRODUCT USED FOR UNKNOWN INDICATION
     Dosage: PARACETAMOL 325 MG/ TRAMADOL HCL 37.5 MG FILM COATED TABLETS
     Route: 048
     Dates: start: 20070701, end: 20100701

REACTIONS (4)
  - NEUROPATHY PERIPHERAL [None]
  - INTESTINAL OBSTRUCTION [None]
  - FALL [None]
  - GAIT DISTURBANCE [None]
